FAERS Safety Report 8478079-X (Version None)
Quarter: 2012Q2

REPORT INFORMATION
  Report Type: 
  Country: None (occurrence: None)
  Receive Date: 20120629
  Receipt Date: 20120622
  Transmission Date: 20120825
  Serious: Yes (Hospitalization, Other)
  Sender: FDA-Public Use
  Company Number: CA-B.I. PHARMACEUTICALS,INC./RIDGEFIELD-2012-CN-01311CN

PATIENT
  Age: 74 Year
  Sex: Male

DRUGS (5)
  1. PERCOCET [Concomitant]
  2. PRADAXA [Suspect]
     Indication: ATRIAL FIBRILLATION
     Dosage: 300 MG
     Dates: start: 20120515, end: 20120615
  3. TEMAZEPAM [Concomitant]
  4. BISOPROLOL FUMARATE [Concomitant]
  5. RABEPRAZOLE SODIUM [Concomitant]

REACTIONS (4)
  - CONTUSION [None]
  - RENAL FAILURE [None]
  - GASTRIC CANCER [None]
  - LYMPHOMA [None]
